FAERS Safety Report 9745574 (Version 6)
Quarter: 2014Q1

REPORT INFORMATION
  Report Type: Report from Study
  Country: IT (occurrence: IT)
  Receive Date: 20131211
  Receipt Date: 20140211
  Transmission Date: 20141002
  Serious: Yes (Hospitalization)
  Sender: FDA-Public Use
  Company Number: IT-ROCHE-1314654

PATIENT
  Age: 87 Year
  Sex: Female
  Weight: 72 kg

DRUGS (13)
  1. VISMODEGIB [Suspect]
     Indication: BASAL CELL CARCINOMA
     Dosage: THE LAST DOSE PRIOR TO THE EVENT WAS ON 01/DEC/2013.
     Route: 048
     Dates: start: 20121004
  2. COUMADIN [Concomitant]
     Indication: ATRIAL FIBRILLATION
  3. LANOXIN [Concomitant]
     Indication: ATRIAL FIBRILLATION
     Route: 065
  4. BISOPROLOL [Concomitant]
     Indication: HYPERTENSION
     Route: 065
     Dates: end: 20131204
  5. BISOPROLOL [Concomitant]
     Route: 065
     Dates: start: 20131205
  6. COSOPT [Concomitant]
     Indication: GLAUCOMA
     Route: 065
     Dates: end: 20131203
  7. OMEPRAZOLE [Concomitant]
     Indication: ULCER
     Route: 065
  8. TACHIDOL [Concomitant]
     Indication: ARTHROPATHY
     Dosage: TOTAL DAILY DOSE: 500/30MG.
     Route: 065
     Dates: end: 20131203
  9. TACHIDOL [Concomitant]
     Indication: ULCER
  10. NIFLAM (NIFLUMIC ACID) [Concomitant]
     Indication: ARTHROPATHY
     Route: 065
  11. LEVOXACIN [Concomitant]
     Indication: INFECTION
     Route: 065
     Dates: start: 20121130, end: 20121209
  12. METRONIDAZOLE [Concomitant]
     Route: 065
     Dates: start: 20131205, end: 20131209
  13. DEURSIL [Concomitant]
     Route: 065
     Dates: start: 20131205, end: 20140110

REACTIONS (1)
  - Blood bilirubin increased [Recovered/Resolved]
